FAERS Safety Report 24402505 (Version 1)
Quarter: 2024Q4

REPORT INFORMATION
  Report Type: Report from Study
  Country: CA (occurrence: CA)
  Receive Date: 20241007
  Receipt Date: 20241007
  Transmission Date: 20250115
  Serious: Yes (Death, Other)
  Sender: Alvotech
  Company Number: CA-JAMP PHARMA CORPORATION-2024-JAM-CA-01811

PATIENT
  Sex: Male

DRUGS (1)
  1. SIMLANDI [Suspect]
     Active Substance: ADALIMUMAB-RYVK
     Indication: Psoriasis
     Dosage: UNK
     Route: 065

REACTIONS (1)
  - Death [Fatal]
